FAERS Safety Report 25306928 (Version 5)
Quarter: 2025Q4

REPORT INFORMATION
  Report Type: Spontaneous
  Country: US (occurrence: US)
  Receive Date: 20250513
  Receipt Date: 20251019
  Transmission Date: 20260117
  Serious: No
  Sender: BRISTOL-MYERS SQUIBB COMPANY
  Company Number: US-BRISTOL-MYERS SQUIBB COMPANY-2025-064629

PATIENT
  Age: 70 Year
  Sex: Male
  Weight: 83.46 kg

DRUGS (8)
  1. REVLIMID [Suspect]
     Active Substance: LENALIDOMIDE
     Indication: Plasma cell myeloma
  2. REVLIMID [Suspect]
     Active Substance: LENALIDOMIDE
  3. REVLIMID [Suspect]
     Active Substance: LENALIDOMIDE
     Dates: start: 2020
  4. DEXAMETHASONE [Suspect]
     Active Substance: DEXAMETHASONE
     Indication: Product used for unknown indication
     Dosage: WEEKLY X 3
  5. ACYCLOVIR [Concomitant]
     Active Substance: ACYCLOVIR
     Indication: Prophylaxis
     Dates: start: 20201223
  6. ASPIRIN [Concomitant]
     Active Substance: ASPIRIN
     Indication: Prophylaxis
  7. DENOSUMAB [Concomitant]
     Active Substance: DENOSUMAB
     Indication: Prophylaxis
  8. BORTEZOMIB [Concomitant]
     Active Substance: BORTEZOMIB
     Indication: Prophylaxis

REACTIONS (4)
  - Tooth disorder [Recovering/Resolving]
  - Joint swelling [Not Recovered/Not Resolved]
  - Oedema peripheral [Unknown]
  - Peripheral swelling [Unknown]
